FAERS Safety Report 4520948-7 (Version None)
Quarter: 2004Q4

REPORT INFORMATION
  Report Type: 
  Country: None (occurrence: None)
  Receive Date: 20041206
  Receipt Date: 20041130
  Transmission Date: 20050328
  Serious: Yes (Disabling)
  Sender: FDA-Public Use
  Company Number: GBWYE250001DEC04

PATIENT
  Age: 27 Year
  Sex: Female

DRUGS (2)
  1. EFFEXOR [Suspect]
     Indication: DEPRESSION
     Dosage: ORAL
     Route: 048
     Dates: start: 20041116, end: 20041117
  2. CITALOPRAM [Concomitant]

REACTIONS (4)
  - ABASIA [None]
  - DYSARTHRIA [None]
  - SPEECH DISORDER [None]
  - TREMOR [None]
